FAERS Safety Report 5098775-4 (Version None)
Quarter: 2006Q3

REPORT INFORMATION
  Report Type: 
  Country: None (occurrence: None)
  Receive Date: 20060905
  Receipt Date: 20060817
  Transmission Date: 20061208
  Serious: Yes (Other)
  Sender: FDA-Public Use
  Company Number: TRP_0856_2006

PATIENT
  Age: 56 Year
  Sex: Male

DRUGS (7)
  1. RIBASPHERE [Suspect]
     Indication: HEPATITIS C
     Dosage: DF, PO
     Route: 048
     Dates: start: 20060316, end: 20060701
  2. PEG-INTRON [Suspect]
     Indication: HEPATITIS C
     Dosage: DF, SC
     Route: 058
     Dates: start: 20060316, end: 20060701
  3. GEMFIBROZIL [Concomitant]
  4. GLYBURIDE [Concomitant]
  5. NPH INSULIN PORK [Concomitant]
  6. LISINOPRIL [Concomitant]
  7. SYNTHROID [Concomitant]

REACTIONS (4)
  - GOITRE [None]
  - THYROID DISORDER [None]
  - THYROID NEOPLASM [None]
  - VIRAL LOAD INCREASED [None]
